FAERS Safety Report 8272062-5 (Version None)
Quarter: 2012Q2

REPORT INFORMATION
  Report Type: 
  Country: None (occurrence: None)
  Receive Date: 20120410
  Receipt Date: 20120330
  Transmission Date: 20120825
  Serious: Yes (Hospitalization, Other)
  Sender: FDA-Public Use
  Company Number: JP-JNJFOC-20120212517

PATIENT
  Age: 5 Decade
  Sex: Male

DRUGS (2)
  1. REMICADE [Suspect]
     Dosage: 11 TH INFUSION
     Route: 042
     Dates: start: 20110401
  2. REMICADE [Suspect]
     Indication: CROHN'S DISEASE
     Route: 042
     Dates: start: 20100201

REACTIONS (2)
  - INFECTIVE SPONDYLITIS [None]
  - BACTERAEMIA [None]
